FAERS Safety Report 4297986-5 (Version None)
Quarter: 2004Q1

REPORT INFORMATION
  Report Type: 
  Country: None (occurrence: None)
  Receive Date: 20040218
  Receipt Date: 20011002
  Transmission Date: 20041129
  Serious: Yes (Other)
  Sender: FDA-Public Use
  Company Number: US-BRISTOL-MYERS SQUIBB COMPANY-11012077

PATIENT
  Age: 24 Year
  Sex: Male

DRUGS (5)
  1. STADOL [Suspect]
     Indication: MIGRAINE
     Route: 045
  2. STADOL [Suspect]
     Indication: MIGRAINE
     Route: 042
  3. DEMEROL [Concomitant]
     Route: 042
  4. MORPHINE [Concomitant]
  5. LORTAB [Concomitant]
     Route: 048

REACTIONS (2)
  - DEPENDENCE [None]
  - DRUG WITHDRAWAL SYNDROME [None]
